FAERS Safety Report 11514133 (Version 4)
Quarter: 2015Q4

REPORT INFORMATION
  Report Type: Spontaneous
  Country: US (occurrence: US)
  Receive Date: 20150903
  Receipt Date: 20151120
  Transmission Date: 20160304
  Serious: No
  Sender: FDA-Public Use
  Company Number: US-ELI_LILLY_AND_COMPANY-US201108006904

PATIENT
  Age: 49 Year
  Sex: Female

DRUGS (8)
  1. FORTEO [Suspect]
     Active Substance: TERIPARATIDE
     Indication: OSTEOPOROSIS
     Dosage: 20 UG, QD
  2. CYMBALTA [Suspect]
     Active Substance: DULOXETINE HYDROCHLORIDE
     Dosage: UNK, UNKNOWN
  3. FORTEO [Suspect]
     Active Substance: TERIPARATIDE
     Dosage: 20 UG, QD
  4. FORTEO [Suspect]
     Active Substance: TERIPARATIDE
     Dosage: 20 UG, QD
  5. GABAPENTIN. [Concomitant]
     Active Substance: GABAPENTIN
     Dosage: UNK, TID
  6. FORTEO [Suspect]
     Active Substance: TERIPARATIDE
     Dosage: 20 UG, QD
  7. FORTEO [Suspect]
     Active Substance: TERIPARATIDE
     Dosage: 20 UG, QD
  8. GABAPENTIN. [Concomitant]
     Active Substance: GABAPENTIN
     Dosage: UNK, BID

REACTIONS (33)
  - Contusion [Unknown]
  - Bone density abnormal [Unknown]
  - Nuclear magnetic resonance imaging abnormal [Unknown]
  - Musculoskeletal disorder [Unknown]
  - Contusion [Unknown]
  - Nervousness [Unknown]
  - Fall [Recovered/Resolved]
  - Fall [Unknown]
  - Joint injury [Recovered/Resolved]
  - Adverse drug reaction [Unknown]
  - Fall [Recovering/Resolving]
  - Malaise [Unknown]
  - Joint injury [Unknown]
  - Fall [Recovered/Resolved]
  - Feeling abnormal [Unknown]
  - Fall [Unknown]
  - Fall [Unknown]
  - Contusion [Recovering/Resolving]
  - Arthralgia [Unknown]
  - Fibromyalgia [Unknown]
  - Injury [Recovered/Resolved]
  - Concussion [Recovered/Resolved]
  - Arthropathy [Unknown]
  - Arthropathy [Unknown]
  - Musculoskeletal discomfort [Recovered/Resolved]
  - Alopecia [Unknown]
  - Fall [Recovered/Resolved]
  - Fall [Recovered/Resolved]
  - Pain [Not Recovered/Not Resolved]
  - Injection site bruising [Unknown]
  - Back injury [Recovered/Resolved]
  - Dizziness postural [Unknown]
  - Drug hypersensitivity [Unknown]

NARRATIVE: CASE EVENT DATE: 20111210
